FAERS Safety Report 8632343 (Version 3)
Quarter: 2013Q1

REPORT INFORMATION
  Report Type: Spontaneous
  Country: US (occurrence: US)
  Receive Date: 20120625
  Receipt Date: 20130311
  Transmission Date: 20140127
  Serious: Yes (Hospitalization)
  Sender: FDA-Public Use
  Company Number: US-BAYER-2012-060347

PATIENT
  Age: 24 Year
  Sex: Female
  Weight: 54.42 kg

DRUGS (16)
  1. YAZ [Suspect]
     Indication: ACNE
     Dosage: 1 DF, QD
     Dates: start: 20091021, end: 20100914
  2. GIANVI [Suspect]
     Indication: ACNE
     Dosage: UNK
     Dates: start: 20100622, end: 20100914
  3. NSAID^S [Concomitant]
     Dosage: UNK UNK, PRN
  4. AVELOX [Concomitant]
     Indication: ANTIBIOTIC THERAPY
     Dosage: 400 MG, QD
     Dates: start: 200109, end: 201009
  5. AVELOX [Concomitant]
     Indication: UPPER RESPIRATORY TRACT INFECTION
  6. AVELOX [Concomitant]
     Indication: SINUSITIS
  7. BENZOYL PEROXIDE [Concomitant]
     Dosage: UNK UNK, QD
  8. DUAC [Concomitant]
     Dosage: UNK UNK, QD
     Route: 061
     Dates: start: 20100914
  9. MOXIFLOXACIN [Concomitant]
  10. DOCUSATE SODIUM [Concomitant]
     Dosage: UNK
     Dates: start: 20100915
  11. ONDANSETRON HYDROCHLORIDE [Concomitant]
     Dosage: UNK
     Dates: start: 20100915
  12. POTASSIUM CHLORIDE [Concomitant]
     Dosage: UNK
     Dates: start: 20100915
  13. ACETAMINOPHEN [Concomitant]
  14. KETOROLAC TROMETHAMINE [Concomitant]
  15. OXYCODONE W/PARACETAMOL [Concomitant]
  16. TRAMADOL HYDROCHLORIDE [Concomitant]

REACTIONS (8)
  - Deep vein thrombosis [Recovering/Resolving]
  - Pelvic venous thrombosis [Recovering/Resolving]
  - Chest pain [Recovered/Resolved]
  - Injury [Recovering/Resolving]
  - Oedema peripheral [Recovering/Resolving]
  - Pain in extremity [Recovering/Resolving]
  - Pain [None]
  - Off label use [None]
